FAERS Safety Report 7553789-7 (Version None)
Quarter: 2011Q2

REPORT INFORMATION
  Report Type: 
  Country: None (occurrence: None)
  Receive Date: 20110617
  Receipt Date: 20110606
  Transmission Date: 20111010
  Serious: Yes (Other)
  Sender: FDA-Public Use
  Company Number: AU-JNJFOC-20110206574

PATIENT
  Sex: Female

DRUGS (12)
  1. STELARA [Suspect]
     Route: 058
     Dates: start: 20101209
  2. STELARA [Suspect]
     Indication: PSORIATIC ARTHROPATHY
     Route: 058
     Dates: start: 20101111
  3. CORTISONE [Concomitant]
     Route: 061
  4. ALL OTHER THERAPEUTIC PRODUCT [Concomitant]
  5. FERROGRAD [Concomitant]
  6. METHOTREXATE [Concomitant]
     Route: 065
  7. STELARA [Suspect]
     Route: 058
     Dates: start: 20110429
  8. STELARA [Suspect]
     Route: 058
     Dates: start: 20110303
  9. NAPROSON [Concomitant]
  10. CITALOPRAM HYDROBROMIDE [Concomitant]
  11. NEXIUM [Concomitant]
  12. DIFORMIN [Concomitant]

REACTIONS (5)
  - BONE PAIN [None]
  - DRUG EFFECT DECREASED [None]
  - ARTHRALGIA [None]
  - ERYTHEMA [None]
  - ULCER [None]
